FAERS Safety Report 16722606 (Version 9)
Quarter: 2020Q1

REPORT INFORMATION
  Report Type: Report from Study
  Country: US (occurrence: US)
  Receive Date: 20190820
  Receipt Date: 20200319
  Transmission Date: 20200409
  Serious: Yes (Hospitalization, Other)
  Sender: FDA-Public Use
  Company Number: US-TESARO-2019-TSO02512-US

PATIENT
  Age: 79 Year
  Sex: Male

DRUGS (7)
  1. AMITRIPTYLINE [Suspect]
     Active Substance: AMITRIPTYLINE
     Indication: PRODUCT USED FOR UNKNOWN INDICATION
     Dosage: UNK
  2. NIRAPARIB [Suspect]
     Active Substance: NIRAPARIB
     Dosage: 100 MG, QHS WITHOUT FOOD
     Route: 048
     Dates: start: 20190913, end: 20191005
  3. NIRAPARIB [Suspect]
     Active Substance: NIRAPARIB
     Indication: BLADDER CANCER
     Dosage: 200 MG, QD
     Route: 048
     Dates: start: 20190707, end: 20190711
  4. NIRAPARIB [Suspect]
     Active Substance: NIRAPARIB
     Dosage: 100 MG, QHS WITHOUT FOOD
     Route: 048
     Dates: start: 20191009
  5. NIRAPARIB [Suspect]
     Active Substance: NIRAPARIB
     Indication: LUNG NEOPLASM MALIGNANT
     Dosage: 200 MG, HS WITHOUT FOOD
     Route: 048
     Dates: start: 20190726, end: 20190814
  6. CIALIS [Concomitant]
     Active Substance: TADALAFIL
     Indication: PRODUCT USED FOR UNKNOWN INDICATION
     Dosage: UNK
  7. NIRAPARIB [Suspect]
     Active Substance: NIRAPARIB
     Dosage: 100 MG, QD
     Route: 048

REACTIONS (17)
  - Nervous system disorder [Unknown]
  - Constipation [Recovering/Resolving]
  - Intervertebral disc protrusion [Unknown]
  - Lymphoma [Unknown]
  - Weight increased [Unknown]
  - Product use in unapproved indication [Unknown]
  - Hospitalisation [Unknown]
  - Dehydration [Not Recovered/Not Resolved]
  - Tremor [Recovered/Resolved]
  - Memory impairment [Not Recovered/Not Resolved]
  - Pseudomonas infection [Recovered/Resolved]
  - Full blood count increased [Unknown]
  - Dry mouth [Unknown]
  - Malaise [Unknown]
  - Dizziness [Recovered/Resolved]
  - Fatigue [Not Recovered/Not Resolved]
  - Product dose omission [Unknown]

NARRATIVE: CASE EVENT DATE: 20200103
